FAERS Safety Report 4735230-2 (Version None)
Quarter: 2005Q3

REPORT INFORMATION
  Report Type: 
  Country: None (occurrence: None)
  Receive Date: 20050805
  Receipt Date: 20050523
  Transmission Date: 20060218
  Serious: Yes (Disabling)
  Sender: FDA-Public Use
  Company Number: GB-RB-1697-2005

PATIENT
  Age: 62 Year
  Sex: Male

DRUGS (6)
  1. BUPRENORPHINE HCL [Suspect]
     Indication: NEPHROLITHIASIS
     Dosage: AS REQUIRED UP TO 1200 UGM DAILY
     Route: 048
     Dates: start: 19920101
  2. BUPRENORPHINE HCL [Suspect]
     Indication: PAIN
     Dosage: AS REQUIRED UP TO 1200 UGM DAILY
     Route: 048
     Dates: start: 19920101
  3. BUPRENORPHINE HCL [Suspect]
     Indication: SPINAL OSTEOARTHRITIS
     Dosage: AS REQUIRED UP TO 1200 UGM DAILY
     Route: 048
     Dates: start: 19920101
  4. BUPRENORPHINE HCL [Suspect]
     Dosage: AS REQUIRED UP TO 1200 UGM DAILY
     Route: 048
     Dates: start: 19920101
  5. BUPRENORPHINE HCL [Suspect]
     Dosage: AS REQUIRED UP TO 1200 UGM DAILY
     Route: 048
     Dates: start: 19920101
  6. ALFUZOSIN HYDROCHLORIDE [Concomitant]
     Indication: PROSTATISM
     Route: 048

REACTIONS (2)
  - BREAST PAIN [None]
  - GYNAECOMASTIA [None]
